FAERS Safety Report 12326298 (Version 1)
Quarter: 2016Q2

REPORT INFORMATION
  Report Type: Spontaneous
  Country: US (occurrence: None)
  Receive Date: 20160502
  Receipt Date: 20160502
  Transmission Date: 20160815
  Serious: No
  Sender: FDA-Public Use
  Company Number: None

PATIENT
  Age: 40 Year
  Sex: Female

DRUGS (12)
  1. ONDANSETRON [Concomitant]
     Active Substance: ONDANSETRON
  2. GENERLAC [Concomitant]
     Active Substance: LACTULOSE
  3. CAPECITABINE 500MG TAB TEVA PHARMACEUTICALS USA [Suspect]
     Active Substance: CAPECITABINE
     Indication: RECTAL CANCER
     Dosage: 1500MG (3 TABS) TWICE DAILY ON ... DAYS  PO
     Route: 048
     Dates: end: 20160406
  4. HYDROMORPHONE [Concomitant]
     Active Substance: HYDROMORPHONE
  5. FENTANYL. [Concomitant]
     Active Substance: FENTANYL
  6. LORAZEPAM. [Concomitant]
     Active Substance: LORAZEPAM
  7. MORPHINE [Concomitant]
     Active Substance: MORPHINE
  8. DOCQLACE [Concomitant]
     Active Substance: DOCUSATE SODIUM
  9. SSO CREAM [Concomitant]
  10. HYDROCORTISONE CREAM [Concomitant]
     Active Substance: HYDROCORTISONE
  11. OXYCODONE [Concomitant]
     Active Substance: OXYCODONE
  12. PERCOCET [Concomitant]
     Active Substance: ACETAMINOPHEN\OXYCODONE HYDROCHLORIDE

REACTIONS (1)
  - Therapy cessation [None]

NARRATIVE: CASE EVENT DATE: 20160406
